FAERS Safety Report 7139415-X (Version None)
Quarter: 2010Q4

REPORT INFORMATION
  Report Type: 
  Country: None (occurrence: None)
  Receive Date: 20101206
  Receipt Date: 20101203
  Transmission Date: 20110411
  Serious: Yes (Other)
  Sender: FDA-Public Use
  Company Number: DE-ABBOTT-10P-062-0687729-00

PATIENT
  Sex: Female

DRUGS (3)
  1. HUMIRA [Suspect]
     Indication: RHEUMATOID ARTHRITIS
     Route: 058
     Dates: start: 20090618, end: 20101028
  2. ANTIHYPERTENSIVES [Concomitant]
     Indication: HYPERTENSION
  3. ACEMETACIN [Concomitant]
     Indication: RHEUMATOID ARTHRITIS
     Dosage: AS NEEDED

REACTIONS (4)
  - BUNION [None]
  - FOOT DEFORMITY [None]
  - INFLAMMATION [None]
  - RHEUMATOID ARTHRITIS [None]
